FAERS Safety Report 21457383 (Version 1)
Quarter: 2022Q4

REPORT INFORMATION
  Report Type: Spontaneous
  Country: RO (occurrence: RO)
  Receive Date: 20221014
  Receipt Date: 20221014
  Transmission Date: 20230112
  Serious: Yes (Hospitalization, Other)
  Sender: FDA-Public Use
  Company Number: None

PATIENT
  Age: 12 Year
  Sex: Female

DRUGS (4)
  1. ESOMEPRAZOLE [Suspect]
     Active Substance: ESOMEPRAZOLE
     Indication: Oesophagitis
  2. CEFTRIAXONE [Suspect]
     Active Substance: CEFTRIAXONE
     Indication: Antibiotic prophylaxis
     Dosage: 100 MILLIGRAM/KILOGRAM, QD
  3. PANTOPRAZOLE [Suspect]
     Active Substance: PANTOPRAZOLE
     Indication: Product used for unknown indication
  4. OCTREOTIDE [Concomitant]
     Active Substance: OCTREOTIDE
     Indication: Anaemia
     Dosage: 2 UG/KG FOLLOWED BY 2 UG/KG/H UNTIL HAEMOSTASIS

REACTIONS (2)
  - Thrombocytopenia [Unknown]
  - Cholelithiasis [Unknown]
